FAERS Safety Report 9649304 (Version 1)
Quarter: 2013Q4

REPORT INFORMATION
  Report Type: Spontaneous
  Country: JP (occurrence: JP)
  Receive Date: 20131028
  Receipt Date: 20131028
  Transmission Date: 20140711
  Serious: Yes (Other)
  Sender: FDA-Public Use
  Company Number: PHHY2013JP121324

PATIENT
  Sex: 0

DRUGS (1)
  1. DIOVAN [Suspect]
     Route: 048
     Dates: start: 2013

REACTIONS (1)
  - Pancytopenia [Unknown]
